FAERS Safety Report 8345297 (Version 8)
Quarter: 2013Q2

REPORT INFORMATION
  Report Type: Spontaneous
  Country: US (occurrence: US)
  Receive Date: 20120120
  Receipt Date: 20130617
  Transmission Date: 20140414
  Serious: Yes (Congenital Anomaly, Other)
  Sender: FDA-Public Use
  Company Number: US-JNJFOC-20111203821

PATIENT
  Sex: Male

DRUGS (7)
  1. TOPAMAX [Suspect]
     Indication: FOETAL EXPOSURE DURING PREGNANCY
     Route: 064
  2. TOPAMAX [Suspect]
     Indication: FOETAL EXPOSURE DURING PREGNANCY
     Route: 064
     Dates: start: 20080708, end: 20090305
  3. VIMPAT [Suspect]
     Indication: FOETAL EXPOSURE DURING PREGNANCY
     Route: 064
  4. KEPPRA [Suspect]
     Indication: FOETAL EXPOSURE DURING PREGNANCY
     Route: 064
  5. CETIRIZINE HCL [Suspect]
     Indication: FOETAL EXPOSURE DURING PREGNANCY
     Route: 064
  6. FOLIC ACID [Concomitant]
     Indication: PREGNANCY
     Route: 064
  7. ALL OTHER THERAPEUTIC PRODUCT [Concomitant]
     Indication: PRODUCT USED FOR UNKNOWN INDICATION
     Route: 064

REACTIONS (7)
  - Cleft palate [Recovering/Resolving]
  - Cleft lip [Recovering/Resolving]
  - Low set ears [Unknown]
  - Hearing impaired [Recovering/Resolving]
  - Speech disorder [Recovering/Resolving]
  - Nose deformity [Unknown]
  - Weight decreased [Unknown]
